FAERS Safety Report 23790615 (Version 1)
Quarter: 2024Q2

REPORT INFORMATION
  Report Type: Spontaneous
  Country: US (occurrence: US)
  Receive Date: 20240427
  Receipt Date: 20240427
  Transmission Date: 20240715
  Serious: Yes (Hospitalization, Other)
  Sender: FDA-Public Use
  Company Number: US-EPICPHARMA-US-2024EPCLIT00404

PATIENT
  Age: 42 Year
  Sex: Male

DRUGS (1)
  1. HALOPERIDOL LACTATE [Suspect]
     Active Substance: HALOPERIDOL LACTATE
     Indication: Schizophrenia
     Route: 065

REACTIONS (3)
  - Encephalopathy [Recovered/Resolved]
  - Pericarditis [Recovered/Resolved]
  - Overdose [Unknown]
